FAERS Safety Report 21329416 (Version 1)
Quarter: 2022Q3

REPORT INFORMATION
  Report Type: Report from Study
  Country: ES (occurrence: ES)
  Receive Date: 20220913
  Receipt Date: 20220913
  Transmission Date: 20221027
  Serious: Yes (Life-Threatening, Hospitalization)
  Sender: FDA-Public Use
  Company Number: None

PATIENT
  Age: 63 Year
  Sex: Female

DRUGS (5)
  1. CARBOPLATIN [Interacting]
     Active Substance: CARBOPLATIN
     Indication: Breast cancer
     Dosage: 10 MG/ML EFG, 1 VIAL OF 45 ML, CYCLICAL EVERY 3 WEEKS
     Dates: start: 20220119
  2. DOCETAXEL [Interacting]
     Active Substance: DOCETAXEL
     Indication: Breast cancer
     Dosage: 80 MG/4 ML, EFG, 1 VIAL OF 4 ML, CYCLICAL EVERY 3 WEEKS
     Dates: start: 20220119
  3. HERCEPTIN [Interacting]
     Active Substance: TRASTUZUMAB
     Indication: Breast cancer
     Dosage: 600 MG, IN VIAL, PACK OF 1 VIA CONTAINING 600 MG/5 ML OF TRASTUZUMAB, CYCLICAL EVERY 3 WEEKS
     Dates: start: 20220119
  4. METFORMIN [Concomitant]
     Active Substance: METFORMIN HYDROCHLORIDE
     Indication: Diabetes mellitus
     Dosage: 850 MG EFG 50 TABLETS, 1 TABLET DAY
     Dates: start: 20211117
  5. EUTHYROX [Concomitant]
     Active Substance: LEVOTHYROXINE SODIUM
     Indication: Hypothyroidism
     Dosage: 50 MICROGRAMS, 100 TABLETS, 1 COMP DAY
     Dates: start: 20160716

REACTIONS (6)
  - Bacteraemia [Recovering/Resolving]
  - Febrile neutropenia [Recovering/Resolving]
  - Staphylococcal bacteraemia [Recovering/Resolving]
  - Neutropenia [Recovering/Resolving]
  - Pancytopenia [Recovering/Resolving]
  - Drug interaction [Unknown]

NARRATIVE: CASE EVENT DATE: 20220331
